FAERS Safety Report 8824631 (Version 1)
Quarter: 2012Q4

REPORT INFORMATION
  Report Type: 
  Country: GR (occurrence: GR)
  Receive Date: 20121004
  Receipt Date: 20121004
  Transmission Date: 20130627
  Serious: Yes (Hospitalization, Other)
  Sender: FDA-Public Use
  Company Number: PHHY2012GR084899

PATIENT
  Age: 49 Year
  Sex: Female

DRUGS (6)
  1. CICLOSPORIN [Suspect]
  2. VALGANCICLOVIR [Concomitant]
     Indication: ANTIVIRAL PROPHYLAXIS
  3. VALGANCICLOVIR [Concomitant]
     Dosage: 450 mg, QOD
  4. PREDNISOLONE [Concomitant]
     Dosage: 200 mg, per day
  5. BASILIXIMAB [Concomitant]
     Dosage: 20 mg, per day
  6. MYCOPHENOLATE MOFETIL [Concomitant]
     Dosage: 2 g, per day

REACTIONS (9)
  - Cytomegalovirus enteritis [Recovered/Resolved]
  - Diarrhoea [Recovered/Resolved]
  - Abdominal pain [Recovered/Resolved]
  - Pyrexia [Recovered/Resolved]
  - Mucosal ulceration [Recovered/Resolved]
  - Vomiting [Recovered/Resolved]
  - Rectal haemorrhage [Recovered/Resolved]
  - Small intestinal obstruction [Recovered/Resolved]
  - Normochromic normocytic anaemia [Recovered/Resolved]
